FAERS Safety Report 6127113-0 (Version None)
Quarter: 2009Q1

REPORT INFORMATION
  Report Type: 
  Country: None (occurrence: None)
  Receive Date: 20090320
  Receipt Date: 20090309
  Transmission Date: 20090719
  Serious: Yes (Other)
  Sender: FDA-Public Use
  Company Number: TR-PFIZER INC-2009181152

PATIENT

DRUGS (7)
  1. PREGABALIN [Suspect]
     Indication: NEURALGIA
     Dosage: 75 MG, 2X/DAY
     Route: 048
     Dates: start: 20090223
  2. ETODOLAC [Concomitant]
  3. SEVELAMER [Concomitant]
  4. LOSARTAN POTASSIUM [Concomitant]
  5. NIFEDIPINE [Concomitant]
  6. THIOCOLCHICOSIDE [Concomitant]
  7. VITAMIN B1 AND B6 [Concomitant]

REACTIONS (4)
  - DYSPHAGIA [None]
  - FACIAL PALSY [None]
  - OVERDOSE [None]
  - QUADRIPARESIS [None]
